FAERS Safety Report 7408245-3 (Version None)
Quarter: 2011Q2

REPORT INFORMATION
  Report Type: 
  Country: None (occurrence: None)
  Receive Date: 20110412
  Receipt Date: 20110210
  Transmission Date: 20111010
  Serious: No
  Sender: FDA-Public Use
  Company Number: A0912903A

PATIENT
  Age: 79 Year
  Sex: Male

DRUGS (5)
  1. VITAMIN TAB [Concomitant]
  2. JALYN [Suspect]
     Indication: BENIGN PROSTATIC HYPERPLASIA
     Dosage: .5MG PER DAY
     Route: 048
     Dates: start: 20101116, end: 20110208
  3. LOSARTAN POTASSIUM [Concomitant]
  4. ZOCOR [Concomitant]
  5. SINGULAIR [Concomitant]

REACTIONS (4)
  - RASH MACULAR [None]
  - SKIN EXFOLIATION [None]
  - ADVERSE DRUG REACTION [None]
  - BIOPSY [None]
